FAERS Safety Report 6478306-4 (Version None)
Quarter: 2009Q4

REPORT INFORMATION
  Report Type: 
  Country: None (occurrence: None)
  Receive Date: 20091207
  Receipt Date: 20090204
  Transmission Date: 20100525
  Serious: No
  Sender: FDA-Public Use
  Company Number: US-AMGEN-KDL330967

PATIENT
  Sex: Male
  Weight: 114.9 kg

DRUGS (3)
  1. ENBREL [Suspect]
     Indication: RHEUMATOID ARTHRITIS
     Route: 058
     Dates: start: 20090116, end: 20090123
  2. METHOTREXATE [Concomitant]
  3. LEFLUNOMIDE [Concomitant]

REACTIONS (5)
  - BLISTER [None]
  - DRUG ERUPTION [None]
  - EXCORIATION [None]
  - RASH [None]
  - RASH PAPULAR [None]
